FAERS Safety Report 11137208 (Version 3)
Quarter: 2015Q3

REPORT INFORMATION
  Report Type: Spontaneous
  Country: US (occurrence: US)
  Receive Date: 20150526
  Receipt Date: 20150914
  Transmission Date: 20151125
  Serious: Yes (Hospitalization, Disabling, Other)
  Sender: FDA-Public Use
  Company Number: US-MERCK-1505USA013590

PATIENT
  Sex: Female
  Weight: 94.33 kg

DRUGS (2)
  1. JANUVIA [Suspect]
     Active Substance: SITAGLIPTIN PHOSPHATE
     Indication: TYPE 2 DIABETES MELLITUS
     Dosage: 100 MG, QD
     Route: 048
     Dates: start: 20080917, end: 20120203
  2. BYETTA [Suspect]
     Active Substance: EXENATIDE
     Indication: TYPE 2 DIABETES MELLITUS
     Dosage: 10 MICROGRAM, BID
     Dates: start: 20111104, end: 201305

REACTIONS (26)
  - Cholangitis [Unknown]
  - Bile duct stent insertion [Unknown]
  - Splenic vein thrombosis [Unknown]
  - Pancreatic neuroendocrine tumour metastatic [Not Recovered/Not Resolved]
  - Metastases to peritoneum [Unknown]
  - Procedural vomiting [Unknown]
  - Necrosis [Unknown]
  - Pulmonary mass [Unknown]
  - Therapeutic product ineffective [Unknown]
  - Jaundice [Recovered/Resolved]
  - Drug effect decreased [Unknown]
  - Pharyngitis [Unknown]
  - Post procedural constipation [Unknown]
  - Hot flush [Unknown]
  - Procedural nausea [Unknown]
  - Pyrexia [Unknown]
  - Irritable bowel syndrome [Unknown]
  - Metastases to liver [Not Recovered/Not Resolved]
  - Helicobacter infection [Recovered/Resolved]
  - Flank pain [Unknown]
  - Pyrexia [Unknown]
  - Bronchial hyperreactivity [Unknown]
  - Disease progression [Unknown]
  - Abdominal pain [Unknown]
  - Diabetes mellitus inadequate control [Unknown]
  - Nerve compression [Unknown]

NARRATIVE: CASE EVENT DATE: 2013
